FAERS Safety Report 9565104 (Version 2)
Quarter: 2013Q3

REPORT INFORMATION
  Report Type: Report from Study
  Country: HU (occurrence: HU)
  Receive Date: 20130930
  Receipt Date: 20130930
  Transmission Date: 20140515
  Serious: Yes (Life-Threatening, Hospitalization)
  Sender: FDA-Public Use
  Company Number: HU-ROCHE-GNE259531

PATIENT
  Age: 69 Year
  Sex: Male
  Weight: 75.08 kg

DRUGS (5)
  1. RITUXIMAB [Suspect]
     Indication: MANTLE CELL LYMPHOMA
     Dosage: 700 MG, Q3W
     Route: 042
     Dates: start: 20071217
  2. CYCLOPHOSPHAMIDE [Suspect]
     Indication: MANTLE CELL LYMPHOMA
     Route: 065
  3. EPIRUBICIN [Suspect]
     Indication: MANTLE CELL LYMPHOMA
     Route: 065
  4. PREDNISOLONE [Suspect]
     Indication: MANTLE CELL LYMPHOMA
     Route: 065
  5. VINCRISTINE [Suspect]
     Indication: MANTLE CELL LYMPHOMA
     Route: 065

REACTIONS (1)
  - Acute coronary syndrome [Not Recovered/Not Resolved]
